FAERS Safety Report 5345609-6 (Version None)
Quarter: 2007Q2

REPORT INFORMATION
  Report Type: 
  Country: None (occurrence: None)
  Receive Date: 20070424
  Receipt Date: 20060522
  Transmission Date: 20071010
  Serious: Yes (Other)
  Sender: FDA-Public Use
  Company Number: TEST00206001703

PATIENT
  Age: 58 Year
  Sex: Male
  Weight: 89 kg

DRUGS (2)
  1. ANDROGEL [Suspect]
     Dosage: 2.5 GRAM(S) QD TRANSCUTANEOUS DAILY DOSE:  2.5 GRAM(S) VIA ANDROGEL PUMP
     Dates: start: 20050301, end: 20060201
  2. BLOOD PRESSURE MEDICATION (BLOOD PRESSURE MEDICATION [Concomitant]

REACTIONS (1)
  - PROSTATE CANCER [None]
